FAERS Safety Report 14759252 (Version 1)
Quarter: 2018Q2

REPORT INFORMATION
  Report Type: Spontaneous
  Country: GB (occurrence: GB)
  Receive Date: 20180413
  Receipt Date: 20180413
  Transmission Date: 20180711
  Serious: Yes (Other)
  Sender: FDA-Public Use
  Company Number: GB-MYLANLABS-2018M1022964

PATIENT
  Age: 53 Year
  Sex: Male

DRUGS (3)
  1. TRAMADOL. [Suspect]
     Active Substance: TRAMADOL
     Indication: ANALGESIC THERAPY
     Route: 065
  2. ONDANSETRON [Interacting]
     Active Substance: ONDANSETRON
     Indication: NAUSEA
     Dosage: 4 MG
     Route: 042
  3. CITALOPRAM [Interacting]
     Active Substance: CITALOPRAM HYDROBROMIDE
     Indication: DEPRESSION
     Route: 065

REACTIONS (3)
  - Substance-induced psychotic disorder [Recovered/Resolved]
  - Serotonin syndrome [Recovered/Resolved]
  - Drug interaction [Recovered/Resolved]
